FAERS Safety Report 6397732-5 (Version None)
Quarter: 2009Q4

REPORT INFORMATION
  Report Type: 
  Country: None (occurrence: None)
  Receive Date: 20091012
  Receipt Date: 20091002
  Transmission Date: 20100525
  Serious: Yes (Other)
  Sender: FDA-Public Use
  Company Number: SE-ABBOTT-09P-150-0600554-00

PATIENT
  Age: 42 Year
  Sex: Male

DRUGS (4)
  1. DEPAKENE [Suspect]
     Indication: EPILEPSY
     Route: 048
  2. DEPAKENE [Suspect]
     Route: 048
  3. DEPAKENE [Suspect]
  4. PHENYTOIN SODIUM [Concomitant]
     Indication: EPILEPSY
     Route: 065

REACTIONS (2)
  - CONVULSION [None]
  - HEARING IMPAIRED [None]
